FAERS Safety Report 9133062 (Version 2)
Quarter: 2013Q1

REPORT INFORMATION
  Report Type: Report from Study
  Country: US (occurrence: US)
  Receive Date: 20130301
  Receipt Date: 20130314
  Transmission Date: 20140127
  Serious: Yes (Hospitalization)
  Sender: FDA-Public Use
  Company Number: US-ABBOTT-13P-163-1052766-00

PATIENT
  Age: 19 None
  Sex: Male

DRUGS (2)
  1. HUMIRA [Suspect]
     Indication: CROHN^S DISEASE
     Dates: start: 201108
  2. PENTASA [Suspect]
     Indication: CROHN^S DISEASE
     Dates: start: 201301

REACTIONS (4)
  - Rectal haemorrhage [Recovering/Resolving]
  - Bipolar disorder [Recovered/Resolved]
  - Abdominal pain [Recovered/Resolved]
  - Crohn^s disease [Recovered/Resolved]
